FAERS Safety Report 10186656 (Version 3)
Quarter: 2015Q3

REPORT INFORMATION
  Report Type: Spontaneous
  Country: US (occurrence: US)
  Receive Date: 20140521
  Receipt Date: 20150817
  Transmission Date: 20151125
  Serious: No
  Sender: FDA-Public Use
  Company Number: US-GILEAD-2014-0102959

PATIENT
  Age: 16 Year
  Sex: Female

DRUGS (6)
  1. ASPIRIN                            /00002701/ [Concomitant]
     Active Substance: ASPIRIN
  2. ADCIRCA [Concomitant]
     Active Substance: TADALAFIL
  3. LETAIRIS [Suspect]
     Active Substance: AMBRISENTAN
     Indication: ORTNER^S SYNDROME
  4. TYVASO [Concomitant]
     Active Substance: TREPROSTINIL
  5. LETAIRIS [Suspect]
     Active Substance: AMBRISENTAN
     Indication: PULMONARY ARTERIAL HYPERTENSION
     Dosage: 10 MG, QD
     Route: 065
     Dates: start: 20140419
  6. OXYGEN. [Concomitant]
     Active Substance: OXYGEN

REACTIONS (1)
  - Throat irritation [Unknown]
